FAERS Safety Report 5318736-7 (Version None)
Quarter: 2007Q2

REPORT INFORMATION
  Report Type: 
  Country: None (occurrence: None)
  Receive Date: 20070503
  Receipt Date: 20070503
  Transmission Date: 20071010
  Serious: No
  Sender: FDA-Public Use
  Company Number: None

PATIENT
  Sex: Female
  Weight: 127.0072 kg

DRUGS (1)
  1. AMLODIPINE [Suspect]
     Dosage: ONE DAILY
     Dates: start: 20060418, end: 20060425

REACTIONS (2)
  - HEADACHE [None]
  - HYPOAESTHESIA [None]
